FAERS Safety Report 5858785-3 (Version None)
Quarter: 2008Q3

REPORT INFORMATION
  Report Type: 
  Country: None (occurrence: None)
  Receive Date: 20080818
  Receipt Date: 20080613
  Transmission Date: 20090109
  Serious: No
  Sender: FDA-Public Use
  Company Number: WAES 0804USA03633

PATIENT
  Age: 50 Year
  Sex: Male
  Weight: 73.9363 kg

DRUGS (6)
  1. JANUVIA [Suspect]
     Indication: TYPE 2 DIABETES MELLITUS
     Dosage: 100 MG/DAILY/PO
     Route: 048
     Dates: start: 20071001, end: 20080221
  2. ACTOS [Concomitant]
  3. AMARYL [Concomitant]
  4. GLIPIZIDE [Concomitant]
  5. GLUCOPHAGE XR [Concomitant]
  6. NOVOLOG MIX 70/30 [Concomitant]

REACTIONS (2)
  - LETHARGY [None]
  - RASH GENERALISED [None]
